FAERS Safety Report 8315492-5 (Version None)
Quarter: 2012Q2

REPORT INFORMATION
  Report Type: 
  Country: None (occurrence: None)
  Receive Date: 20120426
  Receipt Date: 20120412
  Transmission Date: 20120825
  Serious: Yes (Other)
  Sender: FDA-Public Use
  Company Number: CHPA2012US009304

PATIENT
  Age: 59 Year
  Sex: Male

DRUGS (1)
  1. DESENEX [Suspect]
     Indication: PROPHYLAXIS
     Dosage: UNK, UNK
     Route: 061

REACTIONS (3)
  - INCORRECT DRUG ADMINISTRATION DURATION [None]
  - OFF LABEL USE [None]
  - TYPE 2 DIABETES MELLITUS [None]
